FAERS Safety Report 5965605-5 (Version None)
Quarter: 2008Q4

REPORT INFORMATION
  Report Type: 
  Country: None (occurrence: None)
  Receive Date: 20081125
  Receipt Date: 20081117
  Transmission Date: 20090506
  Serious: Yes (Hospitalization)
  Sender: FDA-Public Use
  Company Number: FR-JNJFOC-20081104374

PATIENT
  Sex: Female

DRUGS (4)
  1. REMICADE [Suspect]
     Route: 042
  2. REMICADE [Suspect]
     Route: 042
  3. REMICADE [Suspect]
     Indication: RHEUMATOID ARTHRITIS
     Route: 042
  4. NOVATREX [Suspect]
     Indication: RHEUMATOID ARTHRITIS
     Dosage: STARTED IN EITHER 1991 OR 2005
     Route: 048

REACTIONS (3)
  - ANAEMIA [None]
  - COLON CANCER [None]
  - DRUG INEFFECTIVE [None]
